FAERS Safety Report 4423774-2 (Version None)
Quarter: 2004Q3

REPORT INFORMATION
  Report Type: 
  Country: None (occurrence: None)
  Receive Date: 20040806
  Receipt Date: 20040720
  Transmission Date: 20050211
  Serious: Yes (Other)
  Sender: FDA-Public Use
  Company Number: JP_040703872

PATIENT
  Age: 66 Year
  Sex: Male
  Weight: 66 kg

DRUGS (10)
  1. GEMZAR [Suspect]
     Indication: PANCREATIC CARCINOMA
     Dosage: 150 MG/M2 OTHER
     Route: 050
     Dates: start: 20020702, end: 20021106
  2. RADIATION THERAPY [Concomitant]
  3. LOXONIN (LOXOPROFEN SODIUM) [Concomitant]
  4. FAMOTIDINE [Concomitant]
  5. ULGUT (BENEXATE HYDROCHLORIDE) [Concomitant]
  6. DIAZEPAM [Concomitant]
  7. EURODIN (ESTAZOLAM) [Concomitant]
  8. MS CONTIN [Concomitant]
  9. MAGNESIUM OXIDE [Concomitant]
  10. CHINESE MEDICINE [Concomitant]

REACTIONS (9)
  - EPIGASTRIC DISCOMFORT [None]
  - FAECAL OCCULT BLOOD [None]
  - GASTRITIS HAEMORRHAGIC [None]
  - MALIGNANT NEOPLASM PROGRESSION [None]
  - METASTASES TO LIVER [None]
  - PERITONITIS [None]
  - PLATELET COUNT DECREASED [None]
  - PORTAL VEIN THROMBOSIS [None]
  - WHITE BLOOD CELL COUNT DECREASED [None]
